FAERS Safety Report 14082484 (Version 1)
Quarter: 2017Q4

REPORT INFORMATION
  Report Type: Spontaneous
  Country: US (occurrence: US)
  Receive Date: 20171013
  Receipt Date: 20171013
  Transmission Date: 20180321
  Serious: No
  Sender: FDA-Public Use
  Company Number: US-GLAXOSMITHKLINE-US2017GSK157245

PATIENT
  Age: 55 Year
  Sex: Male

DRUGS (1)
  1. BREO ELLIPTA [Suspect]
     Active Substance: FLUTICASONE FUROATE\VILANTEROL TRIFENATATE
     Indication: CHRONIC OBSTRUCTIVE PULMONARY DISEASE
     Dosage: UNK, PRN
     Dates: start: 2016

REACTIONS (4)
  - Extra dose administered [Unknown]
  - Intentional product misuse [Unknown]
  - Intentional overdose [Unknown]
  - Chest discomfort [Unknown]
